FAERS Safety Report 23066939 (Version 2)
Quarter: 2023Q4

REPORT INFORMATION
  Report Type: Spontaneous
  Country: US (occurrence: None)
  Receive Date: 20231016
  Receipt Date: 20231026
  Transmission Date: 20240110
  Serious: No
  Sender: FDA-Public Use
  Company Number: 2023A217489

PATIENT

DRUGS (1)
  1. SYMBICORT [Suspect]
     Active Substance: BUDESONIDE\FORMOTEROL FUMARATE DIHYDRATE
     Dosage: 160 ?G; UNKNOWN UNKNOWN
     Route: 055

REACTIONS (7)
  - Dyspnoea [Unknown]
  - Cough [Unknown]
  - Wrong technique in device usage process [Unknown]
  - Product use issue [Unknown]
  - Wheezing [Unknown]
  - Product distribution issue [Unknown]
  - Device malfunction [Unknown]
